FAERS Safety Report 5154265-1 (Version None)
Quarter: 2006Q4

REPORT INFORMATION
  Report Type: 
  Country: None (occurrence: None)
  Receive Date: 20061120
  Receipt Date: 20061107
  Transmission Date: 20070319
  Serious: Yes (Other)
  Sender: FDA-Public Use
  Company Number: US-ELI_LILLY_AND_COMPANY-US200611001083

PATIENT
  Sex: Female

DRUGS (2)
  1. CYMBALTA [Suspect]
     Dosage: 20 MG, 4/D
     Route: 048
  2. LAMISIL                            /00992601/ [Concomitant]
     Dosage: 250 MG, DAILY (1/D)
     Route: 048

REACTIONS (1)
  - RESPIRATORY DISTRESS [None]
